FAERS Safety Report 7134467-5 (Version None)
Quarter: 2010Q4

REPORT INFORMATION
  Report Type: 
  Country: None (occurrence: None)
  Receive Date: 20101130
  Receipt Date: 20101130
  Transmission Date: 20110411
  Serious: No
  Sender: FDA-Public Use
  Company Number: None

PATIENT
  Age: 75 Year
  Sex: Male
  Weight: 77 kg

DRUGS (1)
  1. CIPROFLOXACIN [Suspect]
     Dosage: 500MG BID PO
     Route: 048
     Dates: start: 20100115, end: 20101015

REACTIONS (3)
  - ARTHRALGIA [None]
  - TENDON DISORDER [None]
  - TENDON PAIN [None]
